FAERS Safety Report 7579532-3 (Version None)
Quarter: 2011Q2

REPORT INFORMATION
  Report Type: 
  Country: None (occurrence: None)
  Receive Date: 20110629
  Receipt Date: 20110615
  Transmission Date: 20111010
  Serious: Yes (Hospitalization)
  Sender: FDA-Public Use
  Company Number: US-BAYER-2011-041359

PATIENT
  Age: 20 Year
  Sex: Male

DRUGS (2)
  1. BETAFERON [Suspect]
     Indication: RELAPSING-REMITTING MULTIPLE SCLEROSIS
     Dosage: 8 MIU, QOD
     Route: 058
     Dates: start: 20110402
  2. IBUPROFEN [Concomitant]

REACTIONS (4)
  - DIPLOPIA [None]
  - HEMIPARESIS [None]
  - MULTIPLE SCLEROSIS [None]
  - HYPOAESTHESIA [None]
